FAERS Safety Report 8815891 (Version 2)
Quarter: 2016Q4

REPORT INFORMATION
  Report Type: Report from Study
  Country: FR (occurrence: FR)
  Receive Date: 20120928
  Receipt Date: 20161206
  Transmission Date: 20170207
  Serious: Yes (Death, Hospitalization, Other)
  Sender: FDA-Public Use
  Company Number: FR-ROCHE-CID000000002157554

PATIENT
  Age: 75 Year
  Sex: Male
  Weight: 102 kg

DRUGS (18)
  1. CORTANCYL [Concomitant]
     Active Substance: PREDNISONE
     Indication: RHEUMATOID ARTHRITIS
     Route: 065
  2. BONVIVA [Concomitant]
     Active Substance: IBANDRONATE SODIUM
     Route: 065
  3. DIGOXINE [Concomitant]
     Active Substance: DIGOXIN
     Route: 065
  4. SPIRIVA [Concomitant]
     Active Substance: TIOTROPIUM BROMIDE MONOHYDRATE
     Route: 065
  5. NOVONORM [Concomitant]
     Active Substance: REPAGLINIDE
     Route: 065
  6. LYRICA [Concomitant]
     Active Substance: PREGABALIN
     Route: 065
  7. DIFFU K [Concomitant]
     Active Substance: POTASSIUM CHLORIDE
     Route: 065
  8. FUROSEMIDE. [Concomitant]
     Active Substance: FUROSEMIDE
     Route: 065
  9. MIOREL (FRANCE) [Concomitant]
     Active Substance: METHOCARBAMOL
     Route: 065
  10. KLIPAL [Concomitant]
     Active Substance: ACETAMINOPHEN\CODEINE PHOSPHATE
     Route: 065
  11. ABATACEPT [Concomitant]
     Active Substance: ABATACEPT
  12. RAMIPRIL. [Concomitant]
     Active Substance: RAMIPRIL
     Route: 065
  13. PREVISCAN (FRANCE) [Suspect]
     Active Substance: FLUINDIONE
     Indication: SKIN LESION
     Route: 065
  14. CACIT D3 [Concomitant]
     Active Substance: CALCIUM\CHOLECALCIFEROL
     Route: 065
  15. KREDEX [Concomitant]
     Active Substance: CARVEDILOL
     Route: 065
  16. TOCILIZUMAB [Suspect]
     Active Substance: TOCILIZUMAB
     Indication: RHEUMATOID ARTHRITIS
     Route: 041
     Dates: start: 20100629, end: 20101220
  17. SYMBICORT [Concomitant]
     Active Substance: BUDESONIDE\FORMOTEROL FUMARATE DIHYDRATE
     Route: 065
  18. GABAPENTIN. [Concomitant]
     Active Substance: GABAPENTIN
     Route: 065

REACTIONS (20)
  - Fungal infection [Unknown]
  - Cardiomyopathy [Recovered/Resolved]
  - Acquired gene mutation [Unknown]
  - Arterial disorder [Unknown]
  - Ventricular tachycardia [Unknown]
  - Rash maculo-papular [Unknown]
  - Cardiac murmur [Not Recovered/Not Resolved]
  - Polyneuropathy [Not Recovered/Not Resolved]
  - Oropharyngeal pain [Recovered/Resolved]
  - Acute pulmonary oedema [Fatal]
  - Renal failure [Unknown]
  - Myelodysplastic syndrome [Unknown]
  - Thrombocytopenia [Recovered/Resolved]
  - Melaena [Recovered/Resolved]
  - Cardio-respiratory arrest [Fatal]
  - Prurigo [Unknown]
  - Bradycardia [Unknown]
  - Myeloproliferative neoplasm [Unknown]
  - Urinary tract infection [Recovered/Resolved]
  - Furuncle [Recovered/Resolved]

NARRATIVE: CASE EVENT DATE: 201007
